FAERS Safety Report 6295522-5 (Version None)
Quarter: 2009Q3

REPORT INFORMATION
  Report Type: 
  Country: None (occurrence: None)
  Receive Date: 20090731
  Receipt Date: 20090105
  Transmission Date: 20100115
  Serious: Yes (Death, Hospitalization)
  Sender: FDA-Public Use
  Company Number: THQ2008A00829

PATIENT
  Age: 70 Year
  Sex: Female

DRUGS (1)
  1. ACTOS [Suspect]
     Indication: DIABETES MELLITUS
     Dosage: 45 MG  (45 MG, 1 IN 1 D), PER ORAL
     Route: 048
     Dates: start: 20060101

REACTIONS (2)
  - HAEMATOCRIT DECREASED [None]
  - OEDEMA [None]
